FAERS Safety Report 7283474-0 (Version None)
Quarter: 2011Q1

REPORT INFORMATION
  Report Type: 
  Country: None (occurrence: None)
  Receive Date: 20110209
  Receipt Date: 20110131
  Transmission Date: 20110831
  Serious: Yes (Hospitalization, Other)
  Sender: FDA-Public Use
  Company Number: PHEH2006US10878

PATIENT
  Sex: Male

DRUGS (24)
  1. DEXAMETHASONE [Concomitant]
  2. LEXAPRO [Concomitant]
     Dosage: 10MG, ONECE DAILY
     Dates: start: 20040518
  3. PREVACID [Concomitant]
  4. IBUPROFEN [Concomitant]
     Dosage: 800MG, TID
     Dates: start: 20040225
  5. OXYCONTIN [Concomitant]
     Dosage: 20MG,
     Dates: start: 20040527
  6. ZESTORETIC [Concomitant]
  7. VITAMIN B-12 [Concomitant]
  8. MELPHALAN [Concomitant]
  9. PREDNISONE [Concomitant]
  10. CYTOXAN [Concomitant]
  11. NORVASC [Concomitant]
     Dosage: 10MG, DAILY
     Dates: start: 20040518
  12. CHANTIX [Concomitant]
  13. WELLBUTRIN SR [Concomitant]
     Dosage: 150MG, ONE TABLET TWICE DAILY
     Route: 048
  14. COLACE [Concomitant]
  15. THALIDOMIDE [Concomitant]
  16. NEURONTIN [Concomitant]
  17. OXYCODONE HYDROCHLORIDE [Concomitant]
     Dosage: 5MG,
     Dates: start: 20040527
  18. SENNA [Concomitant]
     Dosage: ONE TABLE SPOON, QD
     Route: 049
  19. PENICILLIN ^GRUNENTHAL^ [Concomitant]
  20. ZOMETA [Suspect]
  21. HYDROCHLOROTHIAZIDE [Concomitant]
  22. LISINOPRIL AND HYDROCHLOROTHIAZIDE [Concomitant]
     Dosage: 12.5-20MG,
     Dates: start: 20040518
  23. KAY CIEL DURA-TABS [Concomitant]
  24. EPOGEN [Concomitant]

REACTIONS (51)
  - PURULENT DISCHARGE [None]
  - HYPOTENSION [None]
  - CELLULITIS [None]
  - THROMBOCYTOPENIA [None]
  - PROSTATIC DISORDER [None]
  - DECREASED APPETITE [None]
  - ARTHRALGIA [None]
  - HYPOCALCAEMIA [None]
  - HYPOKALAEMIA [None]
  - COMPRESSION FRACTURE [None]
  - OSTEOLYSIS [None]
  - LACERATION [None]
  - PAIN IN JAW [None]
  - NEUROPATHY PERIPHERAL [None]
  - OSTEOMYELITIS [None]
  - BONE DISORDER [None]
  - LUNG NEOPLASM [None]
  - GASTROOESOPHAGEAL REFLUX DISEASE [None]
  - OSTEONECROSIS OF JAW [None]
  - ANAEMIA [None]
  - DEPRESSION [None]
  - CONSTIPATION [None]
  - TOOTHACHE [None]
  - AMNESIA [None]
  - CONFUSIONAL STATE [None]
  - ANXIETY [None]
  - ABSCESS [None]
  - JAW FRACTURE [None]
  - ACTINOMYCOTIC SKIN INFECTION [None]
  - OSTEOPENIA [None]
  - EPISTAXIS [None]
  - SINUSITIS [None]
  - DIZZINESS [None]
  - INJURY [None]
  - PAIN [None]
  - POOR DENTAL CONDITION [None]
  - URINARY RETENTION [None]
  - SPINAL COLUMN STENOSIS [None]
  - CANDIDIASIS [None]
  - CHEST PAIN [None]
  - BRONCHITIS [None]
  - OSTEITIS [None]
  - OSTEOARTHRITIS [None]
  - WEIGHT DECREASED [None]
  - CHOLECYSTITIS CHRONIC [None]
  - VISION BLURRED [None]
  - ASTHENIA [None]
  - NIGHT SWEATS [None]
  - DIVERTICULITIS [None]
  - ROTATOR CUFF SYNDROME [None]
  - HYPOAESTHESIA [None]
